FAERS Safety Report 5287820-9 (Version None)
Quarter: 2007Q1

REPORT INFORMATION
  Report Type: 
  Country: None (occurrence: None)
  Receive Date: 20070109
  Receipt Date: 20060515
  Transmission Date: 20070707
  Serious: Yes (Hospitalization)
  Sender: FDA-Public Use
  Company Number: PERC20050034

PATIENT
  Age: 64 Year
  Sex: Male
  Weight: 83.9154 kg

DRUGS (12)
  1. PERCOCET [Suspect]
     Indication: PAIN
  2. ENDOCET UNK ENDO [Suspect]
     Indication: PAIN
  3. ACTIQ [Suspect]
     Indication: PAIN
     Dosage: 400 UG PRN BUCCAL
     Route: 002
     Dates: start: 20040101
  4. FENTANYL-50 [Suspect]
     Indication: PAIN
     Dosage: 50 UG Q72H
  5. NEURONTIN [Suspect]
     Indication: PAIN
     Dosage: 300 MG
  6. TYLENOL W/ CODEINE NO. 3 [Suspect]
     Indication: PAIN
  7. GLIPIZIDE [Concomitant]
  8. AMBIEN [Concomitant]
  9. NEXIUM [Concomitant]
  10. LIPITOR [Concomitant]
  11. EFFEXOR XR [Concomitant]
  12. METOPROLOL SUCCINATE [Concomitant]

REACTIONS (3)
  - CONSTIPATION [None]
  - NAUSEA [None]
  - VOMITING [None]
